FAERS Safety Report 7236127-9 (Version None)
Quarter: 2011Q1

REPORT INFORMATION
  Report Type: 
  Country: None (occurrence: None)
  Receive Date: 20110120
  Receipt Date: 20110112
  Transmission Date: 20110831
  Serious: Yes (Other)
  Sender: FDA-Public Use
  Company Number: US-TEVA-231550USA

PATIENT
  Sex: Female
  Weight: 49.94 kg

DRUGS (1)
  1. PLAN B ONE-STEP [Suspect]
     Indication: POST COITAL CONTRACEPTION
     Route: 048
     Dates: start: 20100401, end: 20100401

REACTIONS (3)
  - PREGNANCY AFTER POST COITAL CONTRACEPTION [None]
  - DRUG INEFFECTIVE [None]
  - ABORTION SPONTANEOUS [None]
